FAERS Safety Report 5154311-5 (Version None)
Quarter: 2006Q4

REPORT INFORMATION
  Report Type: 
  Country: None (occurrence: None)
  Receive Date: 20061120
  Receipt Date: 20061114
  Transmission Date: 20070319
  Serious: Yes (Hospitalization)
  Sender: FDA-Public Use
  Company Number: NL-SANOFI-SYNTHELABO-F01200602318

PATIENT
  Sex: Male

DRUGS (4)
  1. LOPERAMIDE [Concomitant]
     Dosage: UNK
  2. BEVACIZUMAB [Suspect]
     Route: 041
     Dates: start: 20061023, end: 20061023
  3. CAPECITABINE [Suspect]
     Dosage: DAYS 1-14 (1250 MG/M2 AFTER CYCLE 6)
     Route: 048
     Dates: start: 20061023
  4. OXALIPLATIN [Suspect]
     Indication: COLORECTAL CANCER
     Route: 041
     Dates: start: 20061023, end: 20061023

REACTIONS (5)
  - ANAL FISTULA [None]
  - COLITIS ISCHAEMIC [None]
  - DEHYDRATION [None]
  - DIARRHOEA [None]
  - HYPOKALAEMIA [None]
